FAERS Safety Report 7267925-3 (Version None)
Quarter: 2011Q1

REPORT INFORMATION
  Report Type: 
  Country: None (occurrence: None)
  Receive Date: 20110120
  Receipt Date: 20110112
  Transmission Date: 20110831
  Serious: Yes (Hospitalization, Other)
  Sender: FDA-Public Use
  Company Number: EU-2011-10006

PATIENT
  Age: 76 Year
  Sex: Male

DRUGS (4)
  1. GLIBENCLAMIDE [Concomitant]
  2. CLOPIDOGREL [Concomitant]
  3. MAGNUROL (TERAZOSIN HYDROCHLORIDE) [Suspect]
     Indication: BENIGN PROSTATIC HYPERPLASIA
     Dosage: 5 MG MILLIGRAM(S), DAILY DOSE
     Dates: start: 20100121
  4. CILOSTAZOL [Suspect]
     Indication: INTERMITTENT CLAUDICATION
     Dosage: 200 MG MILLIGRAM(S), DAILY DOSE
     Dates: start: 20100609, end: 20101101

REACTIONS (2)
  - ANGINA UNSTABLE [None]
  - CARDIAC FAILURE CONGESTIVE [None]
